FAERS Safety Report 9781470 (Version 4)
Quarter: 2014Q1

REPORT INFORMATION
  Report Type: Spontaneous
  Country: JP (occurrence: JP)
  Receive Date: 20131224
  Receipt Date: 20140319
  Transmission Date: 20141002
  Serious: Yes (Hospitalization, Other)
  Sender: FDA-Public Use
  Company Number: JP-BRISTOL-MYERS SQUIBB COMPANY-19930577

PATIENT
  Age: 43 Year
  Sex: Female

DRUGS (3)
  1. ABILIFY [Suspect]
     Indication: MANIA
     Route: 048
  2. ETIZOLAM [Suspect]
     Route: 048
  3. ESTAZOLAM [Suspect]
     Route: 048

REACTIONS (3)
  - Pulmonary embolism [Recovered/Resolved]
  - Fall [Unknown]
  - Loss of consciousness [Unknown]
